FAERS Safety Report 9536557 (Version 2)
Quarter: 2013Q4

REPORT INFORMATION
  Report Type: Spontaneous
  Country: US (occurrence: US)
  Receive Date: 20130919
  Receipt Date: 20131022
  Transmission Date: 20140711
  Serious: Yes (Other)
  Sender: FDA-Public Use
  Company Number: US-JNJFOC-20130907309

PATIENT
  Age: 52 Year
  Sex: Female
  Weight: 83.01 kg

DRUGS (3)
  1. LEVOFLOXACIN [Suspect]
     Indication: BRONCHITIS
     Dosage: DAILY
     Route: 048
     Dates: start: 20130801, end: 20130810
  2. FLONASE [Concomitant]
     Indication: MULTIPLE ALLERGIES
     Route: 065
     Dates: start: 201205
  3. SINGULAIR [Concomitant]
     Indication: MULTIPLE ALLERGIES
     Route: 048
     Dates: start: 201205

REACTIONS (3)
  - Tendon pain [Not Recovered/Not Resolved]
  - Tendon disorder [Not Recovered/Not Resolved]
  - Joint swelling [Not Recovered/Not Resolved]
